FAERS Safety Report 20746154 (Version 3)
Quarter: 2022Q2

REPORT INFORMATION
  Report Type: Spontaneous
  Country: US (occurrence: US)
  Receive Date: 20220425
  Receipt Date: 20220520
  Transmission Date: 20220720
  Serious: Yes (Other)
  Sender: FDA-Public Use
  Company Number: US-PFIZER INC-202200597258

PATIENT
  Age: 68 Year
  Sex: Male
  Weight: 74 kg

DRUGS (3)
  1. RUXIENCE [Suspect]
     Active Substance: RITUXIMAB-PVVR
     Dosage: 1ST INFUSION, 375 MG/M2
     Dates: start: 20220315, end: 20220315
  2. RUXIENCE [Suspect]
     Active Substance: RITUXIMAB-PVVR
     Dosage: 2ND INFUSION, 375 MG/M2
     Dates: start: 20220322, end: 20220322
  3. RUXIENCE [Suspect]
     Active Substance: RITUXIMAB-PVVR
     Dosage: 3RD INFUSION, 375 MG/M2
     Dates: start: 20220329, end: 20220329

REACTIONS (1)
  - Serum sickness [Unknown]

NARRATIVE: CASE EVENT DATE: 20220315
